FAERS Safety Report 24319396 (Version 1)
Quarter: 2024Q3

REPORT INFORMATION
  Report Type: Report from Study
  Country: IT (occurrence: IT)
  Receive Date: 20240914
  Receipt Date: 20240914
  Transmission Date: 20241016
  Serious: Yes (Hospitalization)
  Sender: ABBVIE
  Company Number: IT-ABBVIE-5917541

PATIENT
  Age: 80 Year
  Sex: Male

DRUGS (1)
  1. VENETOCLAX [Suspect]
     Active Substance: VENETOCLAX
     Indication: Acute myeloid leukaemia
     Route: 048
     Dates: start: 20230501

REACTIONS (1)
  - Gingivitis [Not Recovered/Not Resolved]

NARRATIVE: CASE EVENT DATE: 20240903
